FAERS Safety Report 19993953 (Version 1)
Quarter: 2021Q4

REPORT INFORMATION
  Report Type: Spontaneous
  Country: US (occurrence: US)
  Receive Date: 20211022
  Receipt Date: 20211022
  Transmission Date: 20220303
  Serious: Yes (Hospitalization)
  Sender: FDA-Public Use
  Company Number: None

PATIENT
  Age: 35 Year
  Sex: Female
  Weight: 103.3 kg

DRUGS (6)
  1. CYCLOPHOSPHAMIDE [Suspect]
     Active Substance: CYCLOPHOSPHAMIDE
     Dates: end: 20211001
  2. CYTARABINE [Suspect]
     Active Substance: CYTARABINE
  3. MERCAPTOPURINE [Suspect]
     Active Substance: MERCAPTOPURINE
     Dates: end: 20211014
  4. METHOTREXATE [Suspect]
     Active Substance: METHOTREXATE
  5. ONCASPAR [Suspect]
     Active Substance: PEGASPARGASE
     Dates: end: 20211015
  6. VINCRISTINE SULFATE [Suspect]
     Active Substance: VINCRISTINE SULFATE
     Dates: end: 20211015

REACTIONS (5)
  - Malaise [None]
  - Oropharyngeal pain [None]
  - Chills [None]
  - Culture urine positive [None]
  - Escherichia test positive [None]

NARRATIVE: CASE EVENT DATE: 20211021
